FAERS Safety Report 13954700 (Version 1)
Quarter: 2017Q3

REPORT INFORMATION
  Report Type: Spontaneous
  Country: US (occurrence: US)
  Receive Date: 20170911
  Receipt Date: 20170911
  Transmission Date: 20171128
  Serious: No
  Sender: FDA-Public Use
  Company Number: US-ALLERGAN-1731477US

PATIENT
  Sex: Female

DRUGS (3)
  1. DARVOCET [Suspect]
     Active Substance: ACETAMINOPHEN\PROPOXYPHENE HYDROCHLORIDE
     Indication: PAIN
     Dosage: UNKNOWN
     Route: 047
  2. TRAMADOL. [Suspect]
     Active Substance: TRAMADOL
     Indication: PAIN
     Dosage: UNKNOWN
     Route: 047
  3. KETOROLAC TROMETHAMINE 0.4% [Suspect]
     Active Substance: KETOROLAC TROMETHAMINE
     Indication: PAIN
     Dosage: UNKNOWN, PRESCRIBED IN PAST
     Route: 047

REACTIONS (1)
  - Drug hypersensitivity [Recovered/Resolved]
